FAERS Safety Report 5219431-5 (Version None)
Quarter: 2007Q1

REPORT INFORMATION
  Report Type: 
  Country: None (occurrence: None)
  Receive Date: 20070125
  Receipt Date: 20070117
  Transmission Date: 20070707
  Serious: Yes (Hospitalization)
  Sender: FDA-Public Use
  Company Number: FR-SANOFI-SYNTHELABO-A02200602650

PATIENT
  Age: 80 Year
  Sex: Female

DRUGS (3)
  1. PERFALGAN [Suspect]
     Indication: SPINAL CORD ISCHAEMIA
     Dosage: UNK
     Route: 042
     Dates: start: 20060901, end: 20060901
  2. PLAVIX [Suspect]
     Indication: SPINAL CORD ISCHAEMIA
     Dosage: UNK
     Route: 048
     Dates: start: 20060901, end: 20060901
  3. LOVENOX [Suspect]
     Indication: SPINAL CORD ISCHAEMIA
     Dosage: UNK
     Route: 058
     Dates: start: 20060901, end: 20060901

REACTIONS (1)
  - FIXED ERUPTION [None]
